FAERS Safety Report 6374741-3 (Version None)
Quarter: 2009Q3

REPORT INFORMATION
  Report Type: 
  Country: None (occurrence: None)
  Receive Date: 20090924
  Receipt Date: 20090916
  Transmission Date: 20100115
  Serious: Yes (Hospitalization)
  Sender: FDA-Public Use
  Company Number: PHEH2009US10917

PATIENT
  Sex: Male
  Weight: 54.2 kg

DRUGS (2)
  1. EXJADE [Suspect]
     Indication: ACUTE MYELOID LEUKAEMIA
     Dosage: 1000 MG DAILY
     Route: 048
  2. EXJADE [Suspect]
     Indication: SERUM FERRITIN INCREASED

REACTIONS (2)
  - HYPERTENSION [None]
  - PLATELET COUNT DECREASED [None]
